FAERS Safety Report 15835197 (Version 1)
Quarter: 2019Q1

REPORT INFORMATION
  Report Type: Spontaneous
  Country: US (occurrence: US)
  Receive Date: 20190116
  Receipt Date: 20190116
  Transmission Date: 20190417
  Serious: No
  Sender: FDA-Public Use
  Company Number: US-GLENMARK PHARMACEUTICALS-2018GMK038259

PATIENT

DRUGS (5)
  1. MUPIROCIN. [Suspect]
     Active Substance: MUPIROCIN
     Indication: NAIL BED INFLAMMATION
  2. MUPIROCIN CREAM USP, 2% [Suspect]
     Active Substance: MUPIROCIN
     Indication: APPLICATION SITE BURN
  3. MUPIROCIN CREAM USP, 2% [Suspect]
     Active Substance: MUPIROCIN
     Indication: VARICOSE ULCERATION
     Dosage: UNK
     Route: 061
  4. MUPIROCIN. [Suspect]
     Active Substance: MUPIROCIN
     Indication: VARICOSE ULCERATION
     Dosage: UNK
     Route: 061
  5. MUPIROCIN. [Suspect]
     Active Substance: MUPIROCIN
     Indication: PERIPHERAL SWELLING

REACTIONS (3)
  - Application site pain [Recovered/Resolved]
  - Drug effective for unapproved indication [Unknown]
  - Intentional product use issue [Unknown]
